FAERS Safety Report 14188893 (Version 1)
Quarter: 2017Q4

REPORT INFORMATION
  Report Type: Spontaneous
  Country: JP (occurrence: JP)
  Receive Date: 20171114
  Receipt Date: 20171114
  Transmission Date: 20180321
  Serious: Yes (Other)
  Sender: FDA-Public Use
  Company Number: JP-AMGEN-JPNSP2017165489

PATIENT
  Age: 72 Year
  Sex: Female

DRUGS (3)
  1. EDIROL [Concomitant]
     Active Substance: ELDECALCITOL
     Dosage: UNK
     Route: 048
     Dates: start: 20171021
  2. VIVIANT [Concomitant]
     Active Substance: BAZEDOXIFENE
     Dosage: UNK
     Route: 048
     Dates: start: 20171021
  3. PRALIA [Suspect]
     Active Substance: DENOSUMAB
     Indication: OSTEOPOROSIS
     Dosage: UNK
     Route: 065
     Dates: start: 20171021

REACTIONS (10)
  - Hypoaesthesia oral [Not Recovered/Not Resolved]
  - Eczema [Not Recovered/Not Resolved]
  - Palpitations [Not Recovered/Not Resolved]
  - Pollakiuria [Unknown]
  - Urinary retention [Unknown]
  - Paraesthesia [Not Recovered/Not Resolved]
  - Hot flush [Not Recovered/Not Resolved]
  - Blood pressure fluctuation [Not Recovered/Not Resolved]
  - Gingival atrophy [Unknown]
  - Myalgia [Not Recovered/Not Resolved]

NARRATIVE: CASE EVENT DATE: 201710
